FAERS Safety Report 8013751-7 (Version None)
Quarter: 2011Q4

REPORT INFORMATION
  Report Type: 
  Country: None (occurrence: None)
  Receive Date: 20111229
  Receipt Date: 20111216
  Transmission Date: 20120403
  Serious: Yes (Hospitalization)
  Sender: FDA-Public Use
  Company Number: US-ELI_LILLY_AND_COMPANY-US201111005410

PATIENT
  Sex: Female

DRUGS (15)
  1. FORTEO [Suspect]
     Indication: OSTEOPOROSIS
     Dosage: 20 UG, QD
     Route: 065
     Dates: start: 20110928, end: 20111101
  2. MORPHINE [Concomitant]
  3. ABILIFY [Concomitant]
     Dosage: 2 MG, QD
  4. AMBIEN [Concomitant]
     Indication: INSOMNIA
     Dosage: UNK, PRN
  5. LEXAPRO [Concomitant]
     Dosage: 20 MG, QD
  6. ACTOS [Concomitant]
     Dosage: 30 MG, QD
  7. TRICOR [Concomitant]
     Dosage: 48 MG, QD
  8. LISINOPRIL [Concomitant]
     Dosage: 10 MG, EACH MORNING
  9. VERAPAMIL [Concomitant]
  10. PRAVASTATIN [Concomitant]
     Dosage: 40 MG, EACH EVENING
  11. XANAX [Concomitant]
  12. VITAMINS NOS [Concomitant]
  13. NEXIUM [Concomitant]
     Dosage: 40 MG, QD
  14. SYNTHROID [Concomitant]
     Dosage: 0.1 MG, QD
  15. DETROL LA [Concomitant]
     Dosage: UNK, QD

REACTIONS (12)
  - ADVERSE DRUG REACTION [None]
  - LOCALISED INFECTION [None]
  - STRESS FRACTURE [None]
  - DIZZINESS [None]
  - PALPITATIONS [None]
  - INSOMNIA [None]
  - DRUG INEFFECTIVE [None]
  - HEART RATE INCREASED [None]
  - AGITATION [None]
  - BLOOD PRESSURE DECREASED [None]
  - BLISTER [None]
  - CARDIAC DISORDER [None]
